FAERS Safety Report 24856982 (Version 1)
Quarter: 2025Q1

REPORT INFORMATION
  Report Type: Spontaneous
  Country: US (occurrence: US)
  Receive Date: 20250117
  Receipt Date: 20250117
  Transmission Date: 20250409
  Serious: No
  Sender: SK LIFE SCIENCE
  Company Number: US-SK LIFE SCIENCE, INC-SKPVG-2024-001674

PATIENT

DRUGS (17)
  1. XCOPRI [Suspect]
     Active Substance: CENOBAMATE
     Indication: Seizure
     Route: 048
     Dates: start: 202405, end: 2024
  2. XCOPRI [Suspect]
     Active Substance: CENOBAMATE
     Indication: Epilepsy
     Dosage: 25 MILLIGRAM, QD
     Route: 048
     Dates: start: 2024, end: 2024
  3. XCOPRI [Suspect]
     Active Substance: CENOBAMATE
     Dosage: 100 MILLIGRAM, ONE DOSE AT 8:30-9:00 PM
     Route: 048
     Dates: start: 2024, end: 2024
  4. XCOPRI [Suspect]
     Active Substance: CENOBAMATE
     Dosage: 150MG, ONE TIME A DAY AT 8PM
     Route: 048
     Dates: start: 2024, end: 2024
  5. XCOPRI [Suspect]
     Active Substance: CENOBAMATE
     Dosage: 150MG ONCE DAILY AT NIGHT
     Route: 048
     Dates: start: 2024, end: 2024
  6. XCOPRI [Suspect]
     Active Substance: CENOBAMATE
     Dosage: 200MG ONCE DAILY AT 8.30 PM
     Route: 048
     Dates: start: 2024
  7. KEPPRA [Concomitant]
     Active Substance: LEVETIRACETAM
     Indication: Product used for unknown indication
     Dosage: 1500MG IN THE MORNING AND 1500MG AT NIGHT
     Route: 065
  8. ZONISAMIDE [Concomitant]
     Active Substance: ZONISAMIDE
     Indication: Product used for unknown indication
     Route: 065
  9. PREDNISONE [Concomitant]
     Active Substance: PREDNISONE
     Indication: Product used for unknown indication
     Dosage: 4MG, ONE IN THE MORNING, AND ONE IN THE EVENING
     Route: 065
  10. DESMOPRESSIN [Concomitant]
     Active Substance: DESMOPRESSIN
     Indication: Product used for unknown indication
     Dosage: 0.2MG IN THE AM, AND 0.2MG IN THE PM
     Route: 065
  11. DESMOPRESSIN [Concomitant]
     Active Substance: DESMOPRESSIN
     Route: 065
  12. ESTRADIOL [Concomitant]
     Active Substance: ESTRADIOL
     Indication: Product used for unknown indication
     Dosage: 5MG, ONE IN THE PM
     Route: 065
  13. ESTRADIOL [Concomitant]
     Active Substance: ESTRADIOL
     Route: 065
  14. MEDROXYPROGESTERONE [Concomitant]
     Active Substance: MEDROXYPROGESTERONE
     Indication: Product used for unknown indication
     Route: 065
  15. LEVOTHYROXINE SODIUM [Concomitant]
     Active Substance: LEVOTHYROXINE SODIUM
     Indication: Product used for unknown indication
     Dosage: 100MG, ONE AT NIGHT
     Route: 065
  16. LORAZEPAM [Concomitant]
     Active Substance: LORAZEPAM
     Indication: Seizure
     Dosage: 0.5MG ONE IN THE MORNING AND ONE AT NIGHT (PRN FOR SEIZURES, 1MG)
     Route: 065
  17. LORAZEPAM [Concomitant]
     Active Substance: LORAZEPAM
     Dosage: 1MG  TWICE DAILY (MORNING AND EVENING) AND ONE PRN
     Route: 065

REACTIONS (14)
  - Loss of consciousness [Unknown]
  - Generalised tonic-clonic seizure [Not Recovered/Not Resolved]
  - Seizure [Recovered/Resolved]
  - Fall [Unknown]
  - Ligament sprain [Unknown]
  - Seizure [Recovered/Resolved]
  - Seizure [Recovered/Resolved]
  - Seizure [Recovered/Resolved]
  - Focal dyscognitive seizures [Recovered/Resolved]
  - Seizure [Recovered/Resolved]
  - Influenza [Recovered/Resolved]
  - Somnolence [Unknown]
  - Vomiting [Unknown]
  - Diarrhoea [Unknown]

NARRATIVE: CASE EVENT DATE: 20240601
